FAERS Safety Report 6105544-2 (Version None)
Quarter: 2009Q1

REPORT INFORMATION
  Report Type: 
  Country: None (occurrence: None)
  Receive Date: 20090306
  Receipt Date: 20090302
  Transmission Date: 20090719
  Serious: Yes (Hospitalization)
  Sender: FDA-Public Use
  Company Number: B0563362A

PATIENT
  Age: 16 Year
  Sex: Female

DRUGS (2)
  1. CLAVULIN [Suspect]
     Dosage: 1G PER DAY
     Route: 048
     Dates: start: 20090217, end: 20090217
  2. OKI [Concomitant]
     Dosage: 40MG PER DAY
     Route: 048

REACTIONS (3)
  - ACNE [None]
  - ERYTHEMA [None]
  - URTICARIA [None]
